FAERS Safety Report 9171396 (Version 2)
Quarter: 2013Q2

REPORT INFORMATION
  Report Type: Spontaneous
  Country: ID (occurrence: SG)
  Receive Date: 20130319
  Receipt Date: 20130524
  Transmission Date: 20140414
  Serious: Yes (Hospitalization)
  Sender: FDA-Public Use
  Company Number: ID-ROCHE-1202080

PATIENT
  Sex: Male

DRUGS (1)
  1. CELLCEPT [Suspect]
     Indication: TRANSPLANT
     Route: 048

REACTIONS (2)
  - Adverse drug reaction [Unknown]
  - Suspected counterfeit product [Unknown]
